FAERS Safety Report 6758236-0 (Version None)
Quarter: 2010Q2

REPORT INFORMATION
  Report Type: 
  Country: None (occurrence: None)
  Receive Date: 20100524
  Receipt Date: 20100225
  Transmission Date: 20101027
  Serious: No
  Sender: FDA-Public Use
  Company Number: 004356

PATIENT
  Sex: Female
  Weight: 48.5 kg

DRUGS (13)
  1. CIMZIA [Suspect]
     Indication: CROHN'S DISEASE
     Dosage: (400 MG SUBCUTANEOUS)
     Route: 058
     Dates: start: 20091210
  2. PROTONIX /01263202/ [Concomitant]
  3. PENTASA [Concomitant]
  4. ATENOLOL [Concomitant]
  5. ACTONEL [Concomitant]
  6. VITAMIN B-12 [Concomitant]
  7. LUTEIN [Concomitant]
  8. ENTOCORT EC [Concomitant]
  9. FOLIC ACID [Concomitant]
  10. VITAMIN D [Concomitant]
  11. ASPIRIN [Concomitant]
  12. MAGNESIUM [Concomitant]
  13. MULTI-VITAMINS [Concomitant]

REACTIONS (2)
  - DYSGEUSIA [None]
  - NAUSEA [None]
